FAERS Safety Report 7264822-4 (Version None)
Quarter: 2011Q1

REPORT INFORMATION
  Report Type: 
  Country: None (occurrence: None)
  Receive Date: 20110131
  Receipt Date: 20110120
  Transmission Date: 20110831
  Serious: Yes (Death, Disabling, Other)
  Sender: FDA-Public Use
  Company Number: FR-BRISTOL-MYERS SQUIBB COMPANY-15503162

PATIENT
  Age: 27 Month
  Sex: Female

DRUGS (19)
  1. ACETAMINOPHEN [Concomitant]
     Dates: start: 20030618, end: 20030619
  2. DEXAMETHASONE SODIUM PHOSPHATE [Concomitant]
     Dates: start: 20030621, end: 20030626
  3. FLUDARABINE PHOSPHATE [Suspect]
     Route: 042
     Dates: start: 20030621, end: 20030625
  4. ARTIFICIAL TEARS [Concomitant]
     Dates: start: 20030621, end: 20030707
  5. COTRIM [Suspect]
     Route: 065
     Dates: start: 20030620, end: 20030707
  6. CEFTAZIDIME [Concomitant]
     Dates: start: 20030617, end: 20030707
  7. AMIKACIN [Concomitant]
     Dates: start: 20030617, end: 20030707
  8. HEPARIN [Concomitant]
     Dates: start: 20030618, end: 20030619
  9. NEUPOGEN [Suspect]
     Indication: CHEMOTHERAPY
     Route: 042
     Dates: start: 20030621, end: 20030625
  10. CYTARABINE [Suspect]
     Route: 042
     Dates: start: 20030620, end: 20030625
  11. ACICLOVIR [Concomitant]
     Dates: start: 20030620, end: 20030706
  12. ZOPHREN [Concomitant]
     Dates: start: 20030620, end: 20030625
  13. VANCOMYCIN [Concomitant]
     Dates: start: 20030621, end: 20030707
  14. DEXCHLORPHENIRAMINE MALEATE [Concomitant]
     Dates: start: 20030622, end: 20030707
  15. ALIZAPRIDE HCL [Concomitant]
     Dates: start: 20030705, end: 20030705
  16. NICARDIPINE HCL [Concomitant]
     Dates: start: 20030704, end: 20030707
  17. AMPHOTERICIN B [Suspect]
     Route: 042
     Dates: start: 20030623, end: 20030625
  18. URATE OXIDASE [Concomitant]
     Dates: start: 20030622, end: 20030625
  19. DAUNORUBICIN [Concomitant]
     Dates: start: 20030621, end: 20030626

REACTIONS (6)
  - BLINDNESS [None]
  - OPTIC NERVE DISORDER [None]
  - GASTROINTESTINAL DISORDER [None]
  - PYREXIA [None]
  - MULTI-ORGAN FAILURE [None]
  - PETIT MAL EPILEPSY [None]
